FAERS Safety Report 6572032-9 (Version None)
Quarter: 2010Q1

REPORT INFORMATION
  Report Type: 
  Country: None (occurrence: None)
  Receive Date: 20100201
  Receipt Date: 20100118
  Transmission Date: 20100710
  Serious: Yes (Death)
  Sender: FDA-Public Use
  Company Number: A-NJ2009-30456

PATIENT
  Age: 73 Year
  Sex: Female

DRUGS (4)
  1. VENTAVIS          (LOPROST INHALATION SOLUTION 5 UG) US) [Suspect]
     Indication: PULMONARY ARTERIAL HYPERTENSION
     Dosage: 5 UG, RESPIRATORY
     Route: 055
     Dates: start: 20060830, end: 20091107
  2. TRACLEER [Suspect]
     Indication: PULMONARY ARTERIAL HYPERTENSION
     Dosage: 125 MG, BID, ORAL
     Route: 048
     Dates: start: 20060814, end: 20091107
  3. SILDENAFIL CITRATE [Concomitant]
  4. WARFARIN SODIUM [Concomitant]

REACTIONS (1)
  - RESPIRATORY FAILURE [None]
